FAERS Safety Report 14733801 (Version 1)
Quarter: 2018Q2

REPORT INFORMATION
  Report Type: Spontaneous
  Country: TH (occurrence: TH)
  Receive Date: 20180409
  Receipt Date: 20180409
  Transmission Date: 20180711
  Serious: Yes (Other)
  Sender: FDA-Public Use
  Company Number: TH-ORION CORPORATION ORION PHARMA-ENT 2018-0040

PATIENT
  Age: 69 Year
  Sex: Male

DRUGS (11)
  1. PRAMIPEXOLE. [Concomitant]
     Active Substance: PRAMIPEXOLE
     Dosage: STRENGTH: 0.25 MG
     Route: 065
  2. PROCATEROL [Concomitant]
     Active Substance: PROCATEROL HYDROCHLORIDE
     Dosage: STRENGTH: 25 UG
     Route: 065
  3. MANIDIPINE [Concomitant]
     Active Substance: MANIDIPINE
     Dosage: STRENGTH: 10 MG
     Route: 065
  4. FENOTEROL [Concomitant]
     Active Substance: FENOTEROL
     Route: 065
  5. LEVODOPA BENSERAZIDE [Concomitant]
     Active Substance: BENSERAZIDE\LEVODOPA
     Dosage: STRENGTH: 200/50
     Route: 065
  6. OMEPRAZOLE. [Concomitant]
     Active Substance: OMEPRAZOLE
     Dosage: STRENGTH: 20 MG
     Route: 065
  7. ESCITALOPRAM OXALATE. [Suspect]
     Active Substance: ESCITALOPRAM OXALATE
     Dosage: STRENGTH: 10 MG
     Route: 048
  8. THEOPHYLLINE [Concomitant]
     Active Substance: THEOPHYLLINE ANHYDROUS
     Dosage: STRENGTH: 200 MG
     Route: 065
  9. ENTACAPONE (TRADE NAME UNKNOWN) [Suspect]
     Active Substance: ENTACAPONE
     Indication: PARKINSON^S DISEASE
     Dosage: STRENGTH: 200 MG
     Route: 048
  10. SENNOSIDE [Concomitant]
     Active Substance: SENNOSIDES
     Route: 065
  11. QUETIAPINE. [Concomitant]
     Active Substance: QUETIAPINE
     Dosage: STRENGTH: 25 MG
     Route: 065

REACTIONS (26)
  - Posture abnormal [Unknown]
  - Parkinsonian gait [Unknown]
  - Movement disorder [Unknown]
  - Lymphocyte count decreased [Unknown]
  - Sleep talking [Unknown]
  - Nightmare [Unknown]
  - Resting tremor [Recovering/Resolving]
  - Cognitive disorder [Unknown]
  - Reduced facial expression [Unknown]
  - Cogwheel rigidity [Unknown]
  - Mean cell volume decreased [Unknown]
  - Lacunar infarction [Unknown]
  - Cerebral atrophy [Unknown]
  - Affective disorder [Unknown]
  - Acalculia [Unknown]
  - Cerebral disorder [Unknown]
  - Aggression [Unknown]
  - Red cell distribution width increased [Unknown]
  - Memory impairment [Unknown]
  - Irritability [Unknown]
  - Illusion [Unknown]
  - Bradykinesia [Unknown]
  - Retention cyst [Unknown]
  - Anger [Unknown]
  - Somnolence [Unknown]
  - Periventricular leukomalacia [Unknown]
